FAERS Safety Report 16658350 (Version 1)
Quarter: 2019Q3

REPORT INFORMATION
  Report Type: Spontaneous
  Country: US (occurrence: US)
  Receive Date: 20190801
  Receipt Date: 20190801
  Transmission Date: 20191004
  Serious: Yes (Other)
  Sender: FDA-Public Use
  Company Number: US-AMNEAL PHARMACEUTICALS-2019AMN00836

PATIENT
  Age: 68 Year
  Sex: Female
  Weight: 69.84 kg

DRUGS (5)
  1. CRESTOR [Concomitant]
     Active Substance: ROSUVASTATIN CALCIUM
     Indication: PRODUCT USED FOR UNKNOWN INDICATION
     Dosage: 40 MG DAILY
     Route: 065
  2. PRIMIDONE. [Suspect]
     Active Substance: PRIMIDONE
     Dosage: 250 MG, 2X/DAY
     Route: 048
     Dates: start: 201906, end: 20190712
  3. NADOLOL. [Concomitant]
     Active Substance: NADOLOL
     Indication: PRODUCT USED FOR UNKNOWN INDICATION
     Dosage: UNK
     Route: 065
  4. ETHOSUXIMIDE. [Concomitant]
     Active Substance: ETHOSUXIMIDE
     Indication: PRODUCT USED FOR UNKNOWN INDICATION
     Dosage: 250 MG, 3X/DAY
     Route: 065
  5. PRIMIDONE. [Suspect]
     Active Substance: PRIMIDONE
     Dosage: 250 MG, 2X/DAY
     Route: 048
     Dates: start: 20180503

REACTIONS (6)
  - Feeling abnormal [Recovered/Resolved]
  - Petit mal epilepsy [Recovered/Resolved]
  - Aura [Recovered/Resolved]
  - Product substitution issue [Unknown]
  - Disturbance in attention [Recovered/Resolved]
  - Apparent death [Recovered/Resolved]

NARRATIVE: CASE EVENT DATE: 201906
